FAERS Safety Report 7776096-6 (Version None)
Quarter: 2011Q3

REPORT INFORMATION
  Report Type: 
  Country: None (occurrence: None)
  Receive Date: 20110925
  Receipt Date: 20110623
  Transmission Date: 20111222
  Serious: Yes (Other)
  Sender: FDA-Public Use
  Company Number: PHHY2011US55670

PATIENT
  Age: 68 Year
  Sex: Female

DRUGS (2)
  1. FEMARA [Suspect]
     Dosage: UNK
     Route: 048
     Dates: start: 20090101
  2. PREMARIN [Suspect]
     Dosage: UNK UKN, UNK
     Route: 048
     Dates: start: 20040101, end: 20090101

REACTIONS (3)
  - MIGRAINE WITH AURA [None]
  - HEADACHE [None]
  - BREAST CANCER [None]
